FAERS Safety Report 19059214 (Version 12)
Quarter: 2021Q2

REPORT INFORMATION
  Report Type: Report from Study
  Country: CA (occurrence: CA)
  Receive Date: 20210325
  Receipt Date: 20210628
  Transmission Date: 20210717
  Serious: Yes (Hospitalization)
  Sender: FDA-Public Use
  Company Number: CA-EISAI MEDICAL RESEARCH-EC-2021-089935

PATIENT
  Age: 43 Year
  Sex: Female
  Weight: 79.4 kg

DRUGS (22)
  1. PANTOPRAZOLE [Concomitant]
     Active Substance: PANTOPRAZOLE
     Dates: start: 20201214
  2. GRAVOL [Concomitant]
     Active Substance: DIMENHYDRINATE
     Dates: start: 20210314, end: 20210319
  3. LENVATINIB [Suspect]
     Active Substance: LENVATINIB
     Indication: ENDOMETRIAL CANCER
     Route: 048
     Dates: start: 20210223, end: 20210315
  4. ATORVASTATIN [Concomitant]
     Active Substance: ATORVASTATIN
     Dates: start: 20210313
  5. PREGABALIN. [Concomitant]
     Active Substance: PREGABALIN
     Dates: start: 20210227, end: 20210423
  6. PARACETAMOL [Concomitant]
     Active Substance: ACETAMINOPHEN
     Dates: start: 202012
  7. HYDROMORPHONE [Concomitant]
     Active Substance: HYDROMORPHONE
     Dates: start: 20201214, end: 20210518
  8. METOCLOPRAMIDE. [Concomitant]
     Active Substance: METOCLOPRAMIDE
     Dates: start: 20210313, end: 20210319
  9. DYNA GLICAZIDE [Concomitant]
     Active Substance: GLICLAZIDE
     Dates: start: 201501, end: 20210313
  10. DILAUDID [Concomitant]
     Active Substance: HYDROMORPHONE HYDROCHLORIDE
     Dates: start: 20210313, end: 20210314
  11. ONDANSETRON [Concomitant]
     Active Substance: ONDANSETRON
     Dates: start: 20210314, end: 20210319
  12. GRAVOL [Concomitant]
     Active Substance: DIMENHYDRINATE
     Dates: start: 20210308, end: 20210308
  13. PEMBROLIZUMAB. [Suspect]
     Active Substance: PEMBROLIZUMAB
     Route: 041
     Dates: start: 20210406
  14. PANTOPRAZOLE [Concomitant]
     Active Substance: PANTOPRAZOLE
     Dates: start: 20210314, end: 20210326
  15. NAPROXEN. [Concomitant]
     Active Substance: NAPROXEN
     Dates: start: 20210227, end: 20210518
  16. DILAUDID [Concomitant]
     Active Substance: HYDROMORPHONE HYDROCHLORIDE
     Dates: start: 20210314, end: 20210319
  17. ATORVASTATIN [Concomitant]
     Active Substance: ATORVASTATIN
     Dates: start: 201501
  18. PEMBROLIZUMAB. [Suspect]
     Active Substance: PEMBROLIZUMAB
     Indication: ENDOMETRIAL CANCER
     Route: 041
     Dates: start: 20210223, end: 20210223
  19. METHADONE HYDROCHLORIDE. [Concomitant]
     Active Substance: METHADONE HYDROCHLORIDE
     Dates: start: 20210227, end: 20210518
  20. NOVO?GESIC [Concomitant]
     Active Substance: ACETAMINOPHEN
     Dates: start: 20210227, end: 20210520
  21. PEMBROLIZUMAB. [Suspect]
     Active Substance: PEMBROLIZUMAB
     Route: 041
     Dates: start: 20210316, end: 20210316
  22. METFORMIN [Concomitant]
     Active Substance: METFORMIN HYDROCHLORIDE
     Dates: start: 201501, end: 20210518

REACTIONS (1)
  - Gastric ulcer [Recovered/Resolved]

NARRATIVE: CASE EVENT DATE: 20210316
